FAERS Safety Report 9487378 (Version 2)
Quarter: 2013Q3

REPORT INFORMATION
  Report Type: Spontaneous
  Country: US (occurrence: US)
  Receive Date: 20130829
  Receipt Date: 20130913
  Transmission Date: 20140515
  Serious: No
  Sender: FDA-Public Use
  Company Number: US-009507513-1308USA014465

PATIENT
  Age: 70 Year
  Sex: Male
  Weight: 99.77 kg

DRUGS (2)
  1. CLARITIN-D-24 [Suspect]
     Indication: HYPERSENSITIVITY
     Dosage: 10 MG, QD
     Route: 048
     Dates: start: 20130501
  2. CLARITIN-D-24 [Suspect]
     Indication: MEDICAL OBSERVATION

REACTIONS (2)
  - Dry mouth [Recovered/Resolved]
  - Drug ineffective [Unknown]
